FAERS Safety Report 10217112 (Version 2)
Quarter: 2014Q2

REPORT INFORMATION
  Report Type: Report from Study
  Country: PL (occurrence: PL)
  Receive Date: 20140604
  Receipt Date: 20140604
  Transmission Date: 20141212
  Serious: Yes (Hospitalization, Other)
  Sender: FDA-Public Use
  Company Number: PL-JNJFOC-20131105174

PATIENT
  Age: 60 Year
  Sex: Male

DRUGS (16)
  1. USTEKINUMAB [Suspect]
     Indication: RHEUMATOID ARTHRITIS
     Route: 058
     Dates: start: 20130328
  2. USTEKINUMAB [Suspect]
     Indication: RHEUMATOID ARTHRITIS
     Route: 058
     Dates: start: 20130103
  3. USTEKINUMAB [Suspect]
     Indication: RHEUMATOID ARTHRITIS
     Route: 058
     Dates: start: 20121206
  4. USTEKINUMAB [Suspect]
     Indication: RHEUMATOID ARTHRITIS
     Route: 058
     Dates: start: 20130620
  5. TERTENSIF [Concomitant]
     Dates: start: 2008
  6. HCT [Concomitant]
     Dates: start: 2010
  7. CORATOL [Concomitant]
     Dates: start: 2010
  8. HELICID [Concomitant]
  9. ACIDUM FOLICUM [Concomitant]
     Dates: start: 19881117
  10. VITAMIN B6 [Concomitant]
     Dates: start: 2000
  11. KALIPOZ PROLONGATUM [Concomitant]
     Dates: start: 2012
  12. PARACETAMOL [Concomitant]
     Indication: NASOPHARYNGITIS
     Dates: start: 201306
  13. DICLOFENACUM NATRICUM [Concomitant]
     Route: 048
     Dates: start: 201112
  14. METHYLPREDNISOLONUM [Concomitant]
     Route: 048
     Dates: start: 200402
  15. METHOTREXATE [Concomitant]
     Route: 048
     Dates: start: 2008
  16. METAMIZOL NATRIUM [Concomitant]
     Route: 048
     Dates: start: 2013, end: 2013

REACTIONS (1)
  - Squamous cell carcinoma of lung [Recovered/Resolved with Sequelae]
